FAERS Safety Report 24433815 (Version 1)
Quarter: 2024Q4

REPORT INFORMATION
  Report Type: Spontaneous
  Country: US (occurrence: US)
  Receive Date: 20241014
  Receipt Date: 20241014
  Transmission Date: 20250115
  Serious: No
  Sender: SPROUT PHARMACEUTICALS, INC.
  Company Number: US-Sprout Pharmaceuticals, Inc.-2024SP000037

PATIENT
  Age: 46 Year
  Sex: Female
  Weight: 54.48 kg

DRUGS (3)
  1. ADDYI [Suspect]
     Active Substance: FLIBANSERIN
     Indication: Loss of libido
     Route: 048
     Dates: start: 20231104, end: 20231109
  2. ADDYI [Suspect]
     Active Substance: FLIBANSERIN
     Route: 048
     Dates: start: 20231110, end: 20231114
  3. Marijuana Cookie [Concomitant]
     Indication: Sleep disorder
     Route: 048

REACTIONS (9)
  - Heart rate increased [Recovered/Resolved]
  - Respiration abnormal [Recovered/Resolved]
  - Abnormal behaviour [Recovered/Resolved]
  - Throat tightness [Recovered/Resolved]
  - Feeling abnormal [Recovered/Resolved]
  - Anxiety [Recovered/Resolved]
  - Insomnia [Recovered/Resolved]
  - Fatigue [Recovered/Resolved]
  - Off label use [Recovered/Resolved]

NARRATIVE: CASE EVENT DATE: 20231104
